FAERS Safety Report 6505283-X (Version None)
Quarter: 2009Q4

REPORT INFORMATION
  Report Type: 
  Country: None (occurrence: None)
  Receive Date: 20091218
  Receipt Date: 20091207
  Transmission Date: 20100525
  Serious: Yes (Hospitalization)
  Sender: FDA-Public Use
  Company Number: US-JNJFOC-20091102677

PATIENT
  Sex: Male
  Weight: 90.72 kg

DRUGS (9)
  1. REMICADE [Suspect]
     Route: 042
     Dates: start: 20030101, end: 20090706
  2. REMICADE [Suspect]
     Indication: CROHN'S DISEASE
     Route: 042
     Dates: start: 20030101, end: 20090706
  3. AZATHIOPRINE [Concomitant]
     Indication: CROHN'S DISEASE
  4. SIMVASTATIN [Concomitant]
     Indication: BLOOD CHOLESTEROL INCREASED
  5. ZOLPIDEM [Concomitant]
  6. DIOVAN [Concomitant]
     Indication: HYPERTENSION
  7. TOPROL-XL [Concomitant]
     Indication: HYPERTENSION
  8. EFFEXOR [Concomitant]
  9. ASACOL [Concomitant]
     Indication: CROHN'S DISEASE

REACTIONS (3)
  - CHOLELITHIASIS [None]
  - PANCREATITIS [None]
  - RENAL CANCER [None]
